FAERS Safety Report 12001737 (Version 3)
Quarter: 2016Q1

REPORT INFORMATION
  Report Type: Report from Study
  Country: US (occurrence: US)
  Receive Date: 20160204
  Receipt Date: 20160226
  Transmission Date: 20160526
  Serious: Yes (Hospitalization)
  Sender: FDA-Public Use
  Company Number: US-JNJFOC-20160123840

PATIENT
  Age: 74 Year
  Sex: Male

DRUGS (25)
  1. IMBRUVICA [Suspect]
     Active Substance: IBRUTINIB
     Indication: CHRONIC LYMPHOCYTIC LEUKAEMIA
     Route: 048
     Dates: start: 20151222
  2. IMBRUVICA [Suspect]
     Active Substance: IBRUTINIB
     Indication: CHRONIC LYMPHOCYTIC LEUKAEMIA
     Route: 048
     Dates: start: 201506, end: 20151106
  3. IMMUNOGLOBULIN HUMAN NORMAL [Concomitant]
     Active Substance: HUMAN IMMUNOGLOBULIN G
     Route: 042
  4. ALBUTEROL. [Concomitant]
     Active Substance: ALBUTEROL
  5. HYDRODIURIL [Concomitant]
     Active Substance: HYDROCHLOROTHIAZIDE
     Route: 048
  6. ZOCOR [Concomitant]
     Active Substance: SIMVASTATIN
     Route: 048
  7. IMBRUVICA [Suspect]
     Active Substance: IBRUTINIB
     Indication: CHRONIC LYMPHOCYTIC LEUKAEMIA
     Route: 048
     Dates: start: 20151107, end: 20151111
  8. SILVADENE [Concomitant]
     Active Substance: SILVER SULFADIAZINE
     Route: 061
  9. ZOVIRAX [Concomitant]
     Active Substance: ACYCLOVIR
     Indication: CHRONIC LYMPHOCYTIC LEUKAEMIA
     Dosage: 5 TIMES DAILY FOR 10 DAYS
     Route: 048
  10. CENTRUM SILVER ADULTS 50+ [Concomitant]
     Active Substance: MINERALS\VITAMINS
     Route: 048
  11. PRILOSEC [Concomitant]
     Active Substance: OMEPRAZOLE MAGNESIUM
     Route: 048
  12. COUMADIN [Concomitant]
     Active Substance: WARFARIN SODIUM
     Route: 048
  13. IMBRUVICA [Suspect]
     Active Substance: IBRUTINIB
     Indication: CHRONIC LYMPHOCYTIC LEUKAEMIA
     Route: 048
     Dates: start: 20151123, end: 20151204
  14. TENORMIN [Concomitant]
     Active Substance: ATENOLOL
     Route: 048
  15. SYMBICORT [Concomitant]
     Active Substance: BUDESONIDE\FORMOTEROL FUMARATE DIHYDRATE
  16. NORCO [Concomitant]
     Active Substance: ACETAMINOPHEN\HYDROCODONE BITARTRATE
     Indication: PAIN
     Dosage: 5-325 MG, 1 TABLET EVERY 6 HOURS AS NEEDED
     Route: 048
  17. COZAAR [Concomitant]
     Active Substance: LOSARTAN POTASSIUM
     Route: 048
  18. CALCIUM CARBONATE W/VITAMIN D NOS [Concomitant]
     Active Substance: CALCIUM CARBONATE\VITAMIN D
     Dosage: 1 TABLET, BID
     Route: 048
  19. LANTUS [Concomitant]
     Active Substance: INSULIN GLARGINE
     Dosage: 100 UNIT/ML, 20-30 UNITS
  20. ZOVIRAX [Concomitant]
     Active Substance: ACYCLOVIR
     Indication: HYPOGAMMAGLOBULINAEMIA
     Route: 061
  21. ASPIRIN. [Concomitant]
     Active Substance: ASPIRIN
     Route: 048
  22. NASONEX [Concomitant]
     Active Substance: MOMETASONE FUROATE
     Dosage: 50 MCG/ACT, 2 SPRAYS
     Route: 045
  23. NOVOLOG [Concomitant]
     Active Substance: INSULIN ASPART
     Dosage: PER SLIDING SCALE, TID
  24. AMOXICILLIN. [Concomitant]
     Active Substance: AMOXICILLIN
     Route: 048
  25. AZELASTINE HCL [Concomitant]
     Active Substance: AZELASTINE HYDROCHLORIDE
     Route: 045

REACTIONS (6)
  - Pneumonia pneumococcal [Recovered/Resolved]
  - Chronic sinusitis [Recovered/Resolved]
  - Pneumonia [Recovered/Resolved]
  - Rash [Unknown]
  - Pyrexia [Recovered/Resolved]
  - Chills [Recovered/Resolved]

NARRATIVE: CASE EVENT DATE: 20151106
